FAERS Safety Report 7009887-X (Version None)
Quarter: 2010Q3

REPORT INFORMATION
  Report Type: 
  Country: None (occurrence: None)
  Receive Date: 20100923
  Receipt Date: 20100910
  Transmission Date: 20110219
  Serious: Yes (Hospitalization)
  Sender: FDA-Public Use
  Company Number: ES-JNJCH-2010021265

PATIENT
  Age: 7 Year
  Sex: Male

DRUGS (4)
  1. INISTOLIN PEDIATRIC EXPECTORANT [Suspect]
     Indication: PYREXIA
     Dosage: TEXT:5ML  3 A DAY
     Route: 048
     Dates: start: 20100604, end: 20100612
  2. AZITHROMYCIN [Suspect]
     Indication: PYREXIA
     Dosage: TEXT:288 MG ONCE A DAY
     Route: 048
     Dates: start: 20100609, end: 20100612
  3. DALSY [Suspect]
     Indication: COUGH
     Dosage: TEXT:240 MG 4 A DAY
     Route: 048
     Dates: start: 20100604, end: 20100612
  4. ROMILAR [Suspect]
     Indication: COUGH
     Dosage: TEXT:UNKNOWN
     Route: 048
     Dates: start: 20100611, end: 20100611

REACTIONS (2)
  - HEPATOTOXICITY [None]
  - STEVENS-JOHNSON SYNDROME [None]
